FAERS Safety Report 4948985-9 (Version None)
Quarter: 2006Q1

REPORT INFORMATION
  Report Type: 
  Country: None (occurrence: None)
  Receive Date: 20060321
  Receipt Date: 20060131
  Transmission Date: 20060701
  Serious: Yes (Life-Threatening)
  Sender: FDA-Public Use
  Company Number: 2006AP00524

PATIENT
  Age: 17589 Day
  Sex: Female
  Weight: 37.6 kg

DRUGS (12)
  1. IRESSA [Suspect]
     Indication: LUNG ADENOCARCINOMA
     Route: 048
     Dates: start: 20060130, end: 20060130
  2. BROCIN [Concomitant]
     Indication: NON-SMALL CELL LUNG CANCER
     Route: 048
     Dates: start: 20051114, end: 20060130
  3. APRICOT KERNEL WATER [Concomitant]
     Indication: NON-SMALL CELL LUNG CANCER
     Route: 048
     Dates: start: 20051114, end: 20060130
  4. SENEGA [Concomitant]
     Indication: NON-SMALL CELL LUNG CANCER
     Route: 048
     Dates: start: 20051114, end: 20060130
  5. CARBOPLATIN [Concomitant]
     Dosage: 2 COURSES ADMINSTERED
     Dates: start: 20030929
  6. CARBOPLATIN [Concomitant]
     Dosage: 3 COURSES ADMINSTERED
     Dates: start: 20050704
  7. RADIOTHERAPY [Concomitant]
     Indication: METASTASES TO CENTRAL NERVOUS SYSTEM
     Dosage: 30 GY GIVEN
     Dates: start: 20050610, end: 20050623
  8. IRINOTECAN [Concomitant]
     Dosage: 2 COURSES ADMINSTERED
     Dates: start: 20030929
  9. IRINOTECAN [Concomitant]
     Dosage: 3 COURSES ADMINSTERED
     Dates: start: 20050704
  10. GEMCITABINE [Concomitant]
     Dosage: 1 COURSE ADMINSTERED
     Dates: start: 20051206
  11. VINORELBINE TARTRATE [Concomitant]
     Dosage: 1 COURSE ADMINSTERED
     Dates: start: 20051206
  12. OPTIRAY 320 [Concomitant]

REACTIONS (14)
  - ANAPHYLACTIC SHOCK [None]
  - BRONCHOSTENOSIS [None]
  - CONCOMITANT DISEASE AGGRAVATED [None]
  - DRUG INEFFECTIVE [None]
  - HAEMODIALYSIS [None]
  - HAEMOPTYSIS [None]
  - HEPATIC FUNCTION ABNORMAL [None]
  - MULTI-ORGAN FAILURE [None]
  - PANIC ATTACK [None]
  - RENAL FAILURE ACUTE [None]
  - RENAL IMPAIRMENT [None]
  - RESPIRATORY ARREST [None]
  - SHOCK [None]
  - STUPOR [None]
